FAERS Safety Report 5731215-8 (Version None)
Quarter: 2008Q2

REPORT INFORMATION
  Report Type: 
  Country: None (occurrence: None)
  Receive Date: 20080507
  Receipt Date: 20080408
  Transmission Date: 20081010
  Serious: No
  Sender: FDA-Public Use
  Company Number: US-BOEHRINGER INGELHEIM GMBH, GERMANY-2008-BP-03937BP

PATIENT
  Age: 48 Year
  Sex: Male

DRUGS (3)
  1. MIRAPEX [Suspect]
     Indication: RESTLESS LEGS SYNDROME
     Dates: start: 20080129, end: 20080228
  2. LEXAPRO [Concomitant]
     Dates: start: 20080222
  3. MICARDIS HCT [Concomitant]
     Dates: start: 20071130

REACTIONS (5)
  - DYSPNOEA EXERTIONAL [None]
  - EXTRASYSTOLES [None]
  - FATIGUE [None]
  - SLEEP APNOEA SYNDROME [None]
  - VENTRICULAR EXTRASYSTOLES [None]
